FAERS Safety Report 23744958 (Version 2)
Quarter: 2024Q2

REPORT INFORMATION
  Report Type: Spontaneous
  Country: GB (occurrence: GB)
  Receive Date: 20240415
  Receipt Date: 20240508
  Transmission Date: 20240716
  Serious: Yes (Other)
  Sender: FDA-Public Use
  Company Number: None

PATIENT

DRUGS (2)
  1. LEFLUNOMIDE [Suspect]
     Active Substance: LEFLUNOMIDE
     Indication: Rheumatoid arthritis
     Dosage: 10 MG, QD
  2. ADALIMUMAB [Concomitant]
     Active Substance: ADALIMUMAB\ISOPROPYL ALCOHOL
     Indication: Rheumatoid arthritis
     Dosage: UNK
     Dates: start: 2013

REACTIONS (8)
  - Tension [Not Recovered/Not Resolved]
  - Irritability [Not Recovered/Not Resolved]
  - Dysphoria [Recovered/Resolved]
  - Abnormal dreams [Recovered/Resolved]
  - Parasomnia [Recovered/Resolved]
  - Hypervigilance [Not Recovered/Not Resolved]
  - Tearfulness [Not Recovered/Not Resolved]
  - Ageusia [Not Recovered/Not Resolved]
